FAERS Safety Report 5473068-1 (Version None)
Quarter: 2007Q4

REPORT INFORMATION
  Report Type: 
  Country: None (occurrence: None)
  Receive Date: 20071001
  Receipt Date: 20070329
  Transmission Date: 20080405
  Serious: No
  Sender: FDA-Public Use
  Company Number: US-ASTRAZENECA-2007UW06415

PATIENT
  Age: 79 Year
  Sex: Female
  Weight: 93.4 kg

DRUGS (2)
  1. ARIMIDEX [Suspect]
     Indication: BREAST CANCER
     Route: 048
  2. ARIMIDEX [Suspect]
     Indication: MASTECTOMY
     Route: 048

REACTIONS (4)
  - ALOPECIA [None]
  - CONSTIPATION [None]
  - FLATULENCE [None]
  - NODULE [None]
